FAERS Safety Report 5222797-3 (Version None)
Quarter: 2007Q1

REPORT INFORMATION
  Report Type: 
  Country: None (occurrence: None)
  Receive Date: 20070129
  Receipt Date: 20070126
  Transmission Date: 20070707
  Serious: Yes (Hospitalization)
  Sender: FDA-Public Use
  Company Number: US-GLAXOSMITHKLINE-A0637177A

PATIENT
  Age: 36 Year
  Sex: Female

DRUGS (3)
  1. ADVAIR DISKUS 100/50 [Suspect]
     Indication: ASTHMA
     Route: 055
     Dates: start: 20060801, end: 20070101
  2. ALBUTEROL [Concomitant]
  3. ALBUTEROL [Concomitant]

REACTIONS (2)
  - ASTHMA [None]
  - BRONCHITIS [None]
